FAERS Safety Report 5856552-8 (Version None)
Quarter: 2008Q3

REPORT INFORMATION
  Report Type: 
  Country: None (occurrence: None)
  Receive Date: 20080822
  Receipt Date: 20080822
  Transmission Date: 20090109
  Serious: Yes (Life-Threatening, Disabling)
  Sender: FDA-Public Use
  Company Number: None

PATIENT
  Sex: Female
  Weight: 40.8237 kg

DRUGS (4)
  1. PLAVIX [Suspect]
     Indication: CEREBROVASCULAR ACCIDENT
     Dosage: 75 MG ONCE DAY
     Dates: start: 20050501
  2. ANTIBIOTIC [Concomitant]
  3. POTASSIUM CHLORIDE [Concomitant]
  4. LATIX [Concomitant]

REACTIONS (6)
  - CONTUSION [None]
  - FLUID INTAKE REDUCED [None]
  - GASTRIC DISORDER [None]
  - MUSCLE SPASMS [None]
  - RENAL FAILURE [None]
  - WEIGHT DECREASED [None]
